FAERS Safety Report 5204030-1 (Version None)
Quarter: 2007Q1

REPORT INFORMATION
  Report Type: 
  Country: None (occurrence: None)
  Receive Date: 20070110
  Receipt Date: 20051111
  Transmission Date: 20070707
  Serious: No
  Sender: FDA-Public Use
  Company Number: US-BRISTOL-MYERS SQUIBB COMPANY-13150495

PATIENT
  Age: 57 Year
  Sex: Female

DRUGS (7)
  1. ABILIFY [Suspect]
     Indication: BIPOLAR DISORDER
     Route: 048
  2. SEROQUEL [Concomitant]
  3. TOPAMAX [Concomitant]
  4. ARICEPT [Concomitant]
  5. LECTOPAM TAB [Concomitant]
  6. CLONAZEPAM [Concomitant]
  7. NEURONTIN [Concomitant]
     Indication: TRIGEMINAL NEURALGIA

REACTIONS (1)
  - DYSKINESIA [None]
